FAERS Safety Report 10242489 (Version 2)
Quarter: 2014Q2

REPORT INFORMATION
  Report Type: Report from Study
  Country: US (occurrence: US)
  Receive Date: 20140617
  Receipt Date: 20140624
  Transmission Date: 20141212
  Serious: Yes (Death, Other)
  Sender: FDA-Public Use
  Company Number: US-ASTELLAS-2014US006883

PATIENT
  Age: 64 Year
  Sex: Male

DRUGS (7)
  1. ERLOTINIB [Suspect]
     Indication: NON-SMALL CELL LUNG CANCER
     Route: 048
     Dates: start: 20140314, end: 20140507
  2. WARFARIN [Concomitant]
     Indication: DEEP VEIN THROMBOSIS
     Dosage: 5-6 MG, ONCE DAILY
     Route: 048
     Dates: start: 20131107, end: 20140521
  3. WARFARIN [Concomitant]
     Indication: PULMONARY EMBOLISM
  4. METOPROLOL [Concomitant]
     Indication: HYPERTENSION
     Route: 065
     Dates: start: 20140331
  5. KEPPRA [Concomitant]
     Indication: CONVULSION PROPHYLAXIS
     Route: 048
  6. ASA [Concomitant]
     Indication: PRODUCT USED FOR UNKNOWN INDICATION
     Route: 048
  7. SYNTHROID [Concomitant]
     Indication: PRODUCT USED FOR UNKNOWN INDICATION
     Route: 048

REACTIONS (4)
  - Acute respiratory failure [Fatal]
  - Haemoptysis [Fatal]
  - Non-small cell lung cancer [Fatal]
  - Pneumonia [Fatal]
